FAERS Safety Report 23583408 (Version 9)
Quarter: 2025Q1

REPORT INFORMATION
  Report Type: Report from Study
  Country: CA (occurrence: CA)
  Receive Date: 20240301
  Receipt Date: 20250320
  Transmission Date: 20250409
  Serious: Yes (Other)
  Sender: TAKEDA
  Company Number: CA-TAKEDA-2023TUS089016

PATIENT
  Age: 62 Year
  Sex: Male
  Weight: 74.55 kg

DRUGS (5)
  1. VEDOLIZUMAB [Suspect]
     Active Substance: VEDOLIZUMAB
     Indication: Colitis ulcerative
  2. VEDOLIZUMAB [Suspect]
     Active Substance: VEDOLIZUMAB
     Indication: Pouchitis
  3. PENTASA [Concomitant]
     Active Substance: MESALAMINE
     Indication: Colitis ulcerative
  4. PENTASA [Concomitant]
     Active Substance: MESALAMINE
     Dosage: 2 GRAM, QD
  5. AMLODIPINE [Concomitant]
     Active Substance: AMLODIPINE BESYLATE

REACTIONS (15)
  - Diarrhoea [Unknown]
  - Intestinal obstruction [Unknown]
  - COVID-19 [Unknown]
  - Abdominal pain [Unknown]
  - Pneumonia [Unknown]
  - Dysuria [Recovered/Resolved]
  - Haemoglobin decreased [Unknown]
  - Discomfort [Recovered/Resolved]
  - Frequent bowel movements [Unknown]
  - Product dose omission issue [Unknown]
  - Malaise [Recovered/Resolved]
  - Dizziness [Unknown]
  - Abdominal distension [Unknown]
  - Fatigue [Recovered/Resolved]
  - Influenza [Unknown]

NARRATIVE: CASE EVENT DATE: 20240112
